FAERS Safety Report 4315852-3 (Version None)
Quarter: 2004Q1

REPORT INFORMATION
  Report Type: 
  Country: None (occurrence: None)
  Receive Date: 20040303
  Receipt Date: 20030915
  Transmission Date: 20041129
  Serious: Yes (Hospitalization)
  Sender: FDA-Public Use
  Company Number: 430027M03USA

PATIENT
  Age: 75 Year
  Sex: Male

DRUGS (1)
  1. NOVANTRONE [Suspect]
     Indication: LYMPHOMA

REACTIONS (1)
  - PNEUMONITIS [None]
